FAERS Safety Report 7230193-2 (Version None)
Quarter: 2011Q1

REPORT INFORMATION
  Report Type: 
  Country: None (occurrence: None)
  Receive Date: 20110118
  Receipt Date: 20110104
  Transmission Date: 20110831
  Serious: Yes (Other)
  Sender: FDA-Public Use
  Company Number: US-CELGENEUS-163-21880-10103068

PATIENT
  Sex: Female

DRUGS (2)
  1. REVLIMID [Suspect]
     Route: 048
     Dates: start: 20100827
  2. ASPIRIN [Concomitant]
     Route: 065

REACTIONS (3)
  - HAEMORRHAGE [None]
  - PLATELET COUNT DECREASED [None]
  - ECCHYMOSIS [None]
